FAERS Safety Report 21873525 (Version 2)
Quarter: 2023Q1

REPORT INFORMATION
  Report Type: Spontaneous
  Country: US (occurrence: US)
  Receive Date: 20230117
  Receipt Date: 20230119
  Transmission Date: 20230418
  Serious: Yes (Hospitalization)
  Sender: FDA-Public Use
  Company Number: US-RIGEL PHARMACEUTICALS, INC.-2022FOS000028

PATIENT
  Age: 49 Year
  Sex: Female
  Weight: 79.365 kg

DRUGS (1)
  1. TAVALISSE [Suspect]
     Active Substance: FOSTAMATINIB
     Indication: Immune thrombocytopenia
     Dosage: 150 MG, BID
     Route: 048
     Dates: start: 20210622

REACTIONS (2)
  - Platelet count decreased [Unknown]
  - Platelet count [Unknown]

NARRATIVE: CASE EVENT DATE: 20230105
